FAERS Safety Report 20924578 (Version 1)
Quarter: 2022Q2

REPORT INFORMATION
  Report Type: Other
  Country: US (occurrence: None)
  Receive Date: 20220607
  Receipt Date: 20220607
  Transmission Date: 20220721
  Serious: Yes (Other)
  Sender: FDA-Public Use
  Company Number: US-ROCHE-3036574

PATIENT
  Sex: Female

DRUGS (21)
  1. RITUXAN [Suspect]
     Active Substance: RITUXIMAB
     Indication: Product used for unknown indication
     Dosage: 1000MG IV EVERY 2 WEEKS
     Route: 041
  2. CELLCEPT [Suspect]
     Active Substance: MYCOPHENOLATE MOFETIL
     Indication: Product used for unknown indication
     Dosage: 500 MG ORAL TABLET
     Route: 048
  3. ACTEMRA [Suspect]
     Active Substance: TOCILIZUMAB
     Indication: Product used for unknown indication
     Route: 058
  4. AMITRIPTYLINE [Concomitant]
     Active Substance: AMITRIPTYLINE
     Route: 065
  5. CHLOROQUINE [Concomitant]
     Active Substance: CHLOROQUINE
  6. CYCLOBENZAPRINE [Concomitant]
     Active Substance: CYCLOBENZAPRINE
  7. FOLIC ACID [Concomitant]
     Active Substance: FOLIC ACID
  8. GABAPENTIN [Concomitant]
     Active Substance: GABAPENTIN
     Route: 065
  9. GUAIFENESIN [Concomitant]
     Active Substance: GUAIFENESIN
  10. LORATADINE [Concomitant]
     Active Substance: LORATADINE
  11. MELOXICAM [Concomitant]
     Active Substance: MELOXICAM
  12. NIFEDIPINE [Concomitant]
     Active Substance: NIFEDIPINE
  13. NITROGLYCERIN [Concomitant]
     Active Substance: NITROGLYCERIN
  14. PANTOPRAZOLE [Concomitant]
     Active Substance: PANTOPRAZOLE
  15. PREDNISONE [Concomitant]
     Active Substance: PREDNISONE
     Route: 048
  16. PROAIR HFA [Concomitant]
     Active Substance: ALBUTEROL SULFATE
  17. SERTRALINE [Concomitant]
     Active Substance: SERTRALINE HYDROCHLORIDE
  18. TRIAMCINOLONE [Concomitant]
     Active Substance: TRIAMCINOLONE
  19. VALIUM [Concomitant]
     Active Substance: DIAZEPAM
  20. ZOFRAN [Concomitant]
     Active Substance: ONDANSETRON HYDROCHLORIDE
  21. CYCLOPHOSPHAMIDE [Concomitant]
     Active Substance: CYCLOPHOSPHAMIDE

REACTIONS (17)
  - Bronchiectasis [Unknown]
  - Interstitial lung disease [Unknown]
  - Greater trochanteric pain syndrome [Unknown]
  - Sleep disorder [Unknown]
  - Loss of personal independence in daily activities [Unknown]
  - Paraesthesia [Unknown]
  - Formication [Unknown]
  - Arthralgia [Unknown]
  - Oesophagogastroduodenoscopy [Unknown]
  - X-ray with contrast upper gastrointestinal tract [Unknown]
  - Investigation abnormal [Unknown]
  - Ill-defined disorder [Unknown]
  - Lung disorder [Unknown]
  - Scleroderma [Unknown]
  - Skin tightness [Unknown]
  - Respiratory disorder [Unknown]
  - Cough [Unknown]
